FAERS Safety Report 17040246 (Version 18)
Quarter: 2021Q3

REPORT INFORMATION
  Report Type: Report from Study
  Country: CA (occurrence: CA)
  Receive Date: 20191116
  Receipt Date: 20210825
  Transmission Date: 20211014
  Serious: Yes (Life-Threatening, Hospitalization, Other)
  Sender: FDA-Public Use
  Company Number: NVSC2017CA000446

PATIENT
  Age: 65 Year
  Sex: Female

DRUGS (34)
  1. SANDOSTATIN [Suspect]
     Active Substance: OCTREOTIDE ACETATE
     Indication: ABDOMINAL PAIN
     Dosage: 50 UG, TID
     Route: 058
     Dates: start: 2013, end: 20130302
  2. SANDOSTATIN [Suspect]
     Active Substance: OCTREOTIDE ACETATE
     Indication: DIARRHOEA
     Dosage: 100 UG, ONCE OR TWICE DAILY
     Route: 058
  3. FLUTICASONE FUROATE [Concomitant]
     Active Substance: FLUTICASONE FUROATE
     Indication: PRODUCT USED FOR UNKNOWN INDICATION
     Dosage: UNK
     Route: 065
     Dates: start: 2019
  4. SANDOSTATIN LAR DEPOT [Suspect]
     Active Substance: OCTREOTIDE ACETATE
     Dosage: 20 MG
     Route: 030
  5. SANDOSTATIN LAR DEPOT [Suspect]
     Active Substance: OCTREOTIDE ACETATE
     Indication: GASTROINTESTINAL CARCINOMA
     Dosage: 30 MG, QMO
     Route: 030
     Dates: start: 20070503
  6. SANDOSTATIN LAR DEPOT [Suspect]
     Active Substance: OCTREOTIDE ACETATE
     Dosage: 40 MG, Q2W
     Route: 030
     Dates: start: 20070503, end: 20100727
  7. SANDOSTATIN LAR DEPOT [Suspect]
     Active Substance: OCTREOTIDE ACETATE
     Dosage: 40 MG, Q2W
     Route: 030
  8. SANDOSTATIN LAR DEPOT [Suspect]
     Active Substance: OCTREOTIDE ACETATE
     Dosage: 40 MG, Q3W
     Route: 030
     Dates: start: 20190301
  9. OCTREOTIDE. [Suspect]
     Active Substance: OCTREOTIDE
     Dosage: 100 UG, UNK (DAILY 3 DAYS BEFORE INJECTIONS)
     Route: 058
  10. GABAPENTINE [Concomitant]
     Active Substance: GABAPENTIN
     Indication: PAIN
     Dosage: UNK
     Route: 065
  11. METHADONE [Concomitant]
     Active Substance: METHADONE HYDROCHLORIDE
     Dosage: 25 MG, QD
     Route: 048
  12. SANDOSTATIN LAR DEPOT [Suspect]
     Active Substance: OCTREOTIDE ACETATE
     Dosage: 40 MG, Q2W
     Route: 030
     Dates: start: 20070503
  13. SANDOSTATIN LAR DEPOT [Suspect]
     Active Substance: OCTREOTIDE ACETATE
     Dosage: 40 MG, Q3W
     Route: 030
     Dates: start: 2008
  14. SANDOSTATIN LAR DEPOT [Suspect]
     Active Substance: OCTREOTIDE ACETATE
     Dosage: 40 MG, Q2W
     Route: 030
     Dates: start: 20181205
  15. SANDOSTATIN LAR DEPOT [Suspect]
     Active Substance: OCTREOTIDE ACETATE
     Dosage: 40 MG
     Route: 030
  16. CODEINE [Concomitant]
     Active Substance: CODEINE
     Indication: PAIN
     Dosage: UNK
     Route: 065
  17. OCTREOTIDE. [Suspect]
     Active Substance: OCTREOTIDE
     Indication: HYPERHIDROSIS
     Dosage: 100 MICROGRAM PER MILLILITRE, QD
     Route: 058
  18. GABAPENTINE [Concomitant]
     Active Substance: GABAPENTIN
     Indication: SEIZURE
  19. VIOKASE [Concomitant]
     Active Substance: PANCRELIPASE
     Indication: PRODUCT USED FOR UNKNOWN INDICATION
     Dosage: 3?4 TABLET, QID
     Route: 065
  20. VILANTEROL [Concomitant]
     Active Substance: VILANTEROL TRIFENATATE
     Indication: PRODUCT USED FOR UNKNOWN INDICATION
     Route: 065
  21. BREO ELLIPTA [Concomitant]
     Active Substance: FLUTICASONE FUROATE\VILANTEROL TRIFENATATE
     Indication: PRODUCT USED FOR UNKNOWN INDICATION
     Dosage: UNK
     Route: 065
     Dates: start: 2019
  22. SANDOSTATIN LAR DEPOT [Suspect]
     Active Substance: OCTREOTIDE ACETATE
     Dosage: 40 MG, Q2W
     Route: 030
     Dates: start: 20190216
  23. OCTREOTIDE. [Suspect]
     Active Substance: OCTREOTIDE
     Dosage: UNK
     Route: 065
     Dates: start: 20190702
  24. SANDOSTATIN LAR DEPOT [Suspect]
     Active Substance: OCTREOTIDE ACETATE
     Dosage: 20 MG
     Route: 030
  25. SANDOSTATIN LAR DEPOT [Suspect]
     Active Substance: OCTREOTIDE ACETATE
     Dosage: 40 MG, Q3W
     Route: 030
  26. OCTREOTIDE. [Suspect]
     Active Substance: OCTREOTIDE
     Indication: DIARRHOEA
     Dosage: 2 DF, UNK
     Route: 058
     Dates: start: 20190215
  27. OCTREOTIDE. [Suspect]
     Active Substance: OCTREOTIDE
     Indication: ANALGESIC THERAPY
     Dosage: UNK, BID
     Route: 058
  28. GABAPENTINE [Concomitant]
     Active Substance: GABAPENTIN
     Indication: BRAIN NEOPLASM
  29. GLIKAZID [Concomitant]
     Indication: PRODUCT USED FOR UNKNOWN INDICATION
     Dosage: 30 MG, QD
     Route: 065
  30. METHADONE [Concomitant]
     Active Substance: METHADONE HYDROCHLORIDE
     Dosage: 36 MG, UNK
     Route: 065
  31. SANDOSTATIN LAR DEPOT [Suspect]
     Active Substance: OCTREOTIDE ACETATE
     Dosage: UNK, Q2W
     Route: 030
  32. SANDOSTATIN LAR DEPOT [Suspect]
     Active Substance: OCTREOTIDE ACETATE
     Dosage: 40 MG, Q2W
     Route: 030
  33. SANDOSTATIN [Suspect]
     Active Substance: OCTREOTIDE ACETATE
     Indication: GASTROINTESTINAL CARCINOMA
     Dosage: 100 UG, TID
     Route: 058
     Dates: start: 20130214
  34. METHADONE [Concomitant]
     Active Substance: METHADONE HYDROCHLORIDE
     Indication: PRODUCT USED FOR UNKNOWN INDICATION
     Dosage: 42 MG, Q8H
     Route: 065

REACTIONS (67)
  - Chest pain [Unknown]
  - Pneumonia [Unknown]
  - Frequent bowel movements [Unknown]
  - Miliaria [Unknown]
  - Product use in unapproved indication [Unknown]
  - Abdominal distension [Recovered/Resolved]
  - Pneumothorax [Unknown]
  - Escherichia infection [Unknown]
  - Abdominal pain lower [Not Recovered/Not Resolved]
  - Wheezing [Unknown]
  - Breast mass [Unknown]
  - Dyspnoea [Recovered/Resolved]
  - Injection site discomfort [Recovered/Resolved]
  - Carcinoid crisis [Unknown]
  - Vomiting [Recovered/Resolved]
  - Renal impairment [Unknown]
  - Flushing [Unknown]
  - Scab [Recovering/Resolving]
  - Joint swelling [Unknown]
  - Lung disorder [Unknown]
  - Nausea [Unknown]
  - Inappropriate schedule of product administration [Unknown]
  - Product dose omission issue [Unknown]
  - Cardiac failure [Unknown]
  - Hepatic cirrhosis [Unknown]
  - Pain in extremity [Unknown]
  - Varicose vein [Unknown]
  - Skin weeping [Unknown]
  - Injection site pain [Unknown]
  - Carcinoid tumour pulmonary [Unknown]
  - Intestinal obstruction [Recovered/Resolved]
  - Constipation [Recovered/Resolved]
  - Pulmonary oedema [Recovering/Resolving]
  - Carcinoid tumour of the small bowel [Unknown]
  - Diarrhoea [Recovering/Resolving]
  - Blood urine present [Unknown]
  - Hyperhidrosis [Unknown]
  - Body temperature decreased [Unknown]
  - Productive cough [Not Recovered/Not Resolved]
  - Insomnia [Unknown]
  - Micturition urgency [Unknown]
  - Abdominal pain [Recovered/Resolved]
  - Nausea [Recovered/Resolved]
  - Nephrolithiasis [Unknown]
  - Peripheral swelling [Unknown]
  - Urinary tract infection [Unknown]
  - Haemorrhoids [Unknown]
  - Emphysema [Unknown]
  - Post procedural infection [Unknown]
  - Synovial cyst [Unknown]
  - Dyspnoea [Not Recovered/Not Resolved]
  - Incision site pain [Unknown]
  - Injection site haemorrhage [Unknown]
  - Blood pressure increased [Unknown]
  - Rales [Unknown]
  - Cystitis [Unknown]
  - Contusion [Unknown]
  - Therapeutic response shortened [Unknown]
  - Dyspnoea [Recovered/Resolved]
  - Glomerular filtration rate decreased [Unknown]
  - Flank pain [Unknown]
  - Breakthrough pain [Unknown]
  - Anal incontinence [Unknown]
  - Dysuria [Unknown]
  - Joint injury [Unknown]
  - Abdominal discomfort [Unknown]
  - Needle issue [Unknown]

NARRATIVE: CASE EVENT DATE: 2017
